FAERS Safety Report 21162116 (Version 1)
Quarter: 2022Q3

REPORT INFORMATION
  Report Type: Other
  Country: AR (occurrence: AR)
  Receive Date: 20220802
  Receipt Date: 20220802
  Transmission Date: 20221027
  Serious: Yes (Hospitalization, Other)
  Sender: FDA-Public Use
  Company Number: AR-002147023-PHHY2019AR162802

PATIENT
  Age: 77 Year
  Sex: Female

DRUGS (2)
  1. XOLAIR [Suspect]
     Active Substance: OMALIZUMAB
     Indication: Asthma
     Dosage: 8 DF, (1200MG)
     Route: 058
     Dates: start: 20180704
  2. XOLAIR [Suspect]
     Active Substance: OMALIZUMAB
     Dosage: 8 DF, QMO (1200MG)
     Route: 065

REACTIONS (16)
  - Pneumonia [Unknown]
  - Tooth fracture [Not Recovered/Not Resolved]
  - Cataract [Unknown]
  - Wound [Recovering/Resolving]
  - Illness [Unknown]
  - Fatigue [Unknown]
  - Somnolence [Unknown]
  - Visual impairment [Unknown]
  - Memory impairment [Unknown]
  - Gynaecological examination abnormal [Recovering/Resolving]
  - Fungal infection [Recovering/Resolving]
  - Hypersensitivity [Not Recovered/Not Resolved]
  - Bronchitis [Recovered/Resolved]
  - Incorrect dose administered [Unknown]
  - Asthmatic crisis [Not Recovered/Not Resolved]
  - Asthma [Not Recovered/Not Resolved]

NARRATIVE: CASE EVENT DATE: 20200601
